FAERS Safety Report 6986661-1 (Version None)
Quarter: 2010Q3

REPORT INFORMATION
  Report Type: 
  Country: None (occurrence: None)
  Receive Date: 20100915
  Receipt Date: 20100901
  Transmission Date: 20110219
  Serious: Yes (Hospitalization)
  Sender: FDA-Public Use
  Company Number: ES-MYLANLABS-2010S1016053

PATIENT
  Age: 52 Year
  Sex: Female

DRUGS (1)
  1. GABAPENTIN [Suspect]
     Dosage: REGULAR INGESTION IN RECENT MONTHS OF UP TO 120 TABLETS PER DAY (36 G/DAY)
     Route: 048

REACTIONS (1)
  - DEPENDENCE [None]
